FAERS Safety Report 5209061-3 (Version None)
Quarter: 2006Q4

REPORT INFORMATION
  Report Type: 
  Country: None (occurrence: None)
  Receive Date: 20061101
  Receipt Date: 20060627
  Transmission Date: 20070319
  Serious: No
  Sender: FDA-Public Use
  Company Number: 2006PV016595

PATIENT
  Age: 45 Year
  Sex: Female
  Weight: 80.2867 kg

DRUGS (6)
  1. SYMLIN [Suspect]
     Indication: DIABETES MELLITUS INSULIN-DEPENDENT
     Dosage: SEE IMAGE
     Route: 058
     Dates: start: 20060317, end: 20060101
  2. SYMLIN [Suspect]
     Indication: DIABETES MELLITUS INSULIN-DEPENDENT
     Dosage: SEE IMAGE
     Route: 058
     Dates: start: 20060101, end: 20060501
  3. SYMLIN [Suspect]
     Indication: DIABETES MELLITUS INSULIN-DEPENDENT
     Dosage: SEE IMAGE
     Route: 058
     Dates: start: 20060501, end: 20060601
  4. MEDROL [Suspect]
     Dates: start: 20060522, end: 20060522
  5. INSULIIN [Concomitant]
  6. INSULIN [Concomitant]

REACTIONS (9)
  - ANOREXIA [None]
  - BLOOD GLUCOSE INCREASED [None]
  - CONTUSION [None]
  - DRY SKIN [None]
  - DYSPNOEA [None]
  - FATIGUE [None]
  - NAUSEA [None]
  - RASH PRURITIC [None]
  - WEIGHT DECREASED [None]
